FAERS Safety Report 14548697 (Version 3)
Quarter: 2018Q2

REPORT INFORMATION
  Report Type: Spontaneous
  Country: JP (occurrence: JP)
  Receive Date: 20180219
  Receipt Date: 20180608
  Transmission Date: 20180711
  Serious: Yes (Other)
  Sender: FDA-Public Use
  Company Number: JP-BAYER-2018-030915

PATIENT
  Sex: Male
  Weight: 61.45 kg

DRUGS (16)
  1. BAYASPIRIN 100 MG [Suspect]
     Active Substance: ASPIRIN
     Indication: MYOCARDIAL INFARCTION
     Dosage: 100 MG, QD
     Route: 048
     Dates: end: 201006
  2. AZULFIDINE [Concomitant]
     Active Substance: SULFASALAZINE
     Route: 048
  3. CONIEL [Concomitant]
     Active Substance: BENIDIPINE HYDROCHLORIDE
     Route: 048
  4. OLMETEC [Concomitant]
     Active Substance: OLMESARTAN MEDOXOMIL
     Route: 048
  5. PREDONINE [Concomitant]
     Active Substance: PREDNISOLONE
     Route: 048
  6. ALLOZYM [Concomitant]
     Active Substance: ALLOPURINOL
     Route: 048
  7. RABEPRAZOLE [Concomitant]
     Active Substance: RABEPRAZOLE
     Indication: GASTRIC ULCER
     Dosage: DAILY10MG
     Route: 048
  8. PROTECADIN [Concomitant]
     Active Substance: LAFUTIDINE
     Route: 048
  9. LOXONIN [Suspect]
     Active Substance: LOXOPROFEN SODIUM
     Dosage: 60 MG, QD
     Route: 048
  10. WARFARIN [Concomitant]
     Active Substance: WARFARIN
     Indication: MYOCARDIAL ISCHAEMIA
  11. EPADEL [Concomitant]
     Active Substance: ICOSAPENT
     Route: 048
  12. PLAVIX [Concomitant]
     Active Substance: CLOPIDOGREL BISULFATE
  13. LOXOPROFEN [Interacting]
     Active Substance: LOXOPROFEN
     Indication: ARTHRALGIA
     Dosage: DAILY60MG
     Route: 048
  14. MOBIC [Interacting]
     Active Substance: MELOXICAM
     Route: 048
  15. MAGNESIUM OXIDE. [Concomitant]
     Active Substance: MAGNESIUM OXIDE
     Route: 048
  16. METHOTREXATE. [Concomitant]
     Active Substance: METHOTREXATE
     Route: 048

REACTIONS (2)
  - Drug interaction [None]
  - Gastritis erosive [Recovering/Resolving]

NARRATIVE: CASE EVENT DATE: 20070717
